FAERS Safety Report 7409583-0 (Version None)
Quarter: 2011Q2

REPORT INFORMATION
  Report Type: 
  Country: None (occurrence: None)
  Receive Date: 20110412
  Receipt Date: 20110401
  Transmission Date: 20111010
  Serious: Yes (Hospitalization, Other)
  Sender: FDA-Public Use
  Company Number: PHHY2011BR27851

PATIENT
  Sex: Male

DRUGS (5)
  1. ATENOLOL [Concomitant]
  2. FLITROLONTROADIN [Concomitant]
  3. SIMVASTATIN [Concomitant]
  4. DIOVAN AMLO FIX [Suspect]
     Dosage: 320 MG VALS AND 10 MG AMLO
     Route: 048
  5. ASPIRIN [Concomitant]

REACTIONS (1)
  - CEREBROVASCULAR ACCIDENT [None]
